FAERS Safety Report 6380751-2 (Version None)
Quarter: 2009Q3

REPORT INFORMATION
  Report Type: 
  Country: None (occurrence: None)
  Receive Date: 20090924
  Receipt Date: 20090909
  Transmission Date: 20100115
  Serious: Yes (Hospitalization, Other)
  Sender: FDA-Public Use
  Company Number: 2006RR-02643

PATIENT
  Age: 16 Month
  Sex: Female

DRUGS (5)
  1. AUGMENTIN [Suspect]
     Indication: INFLUENZA
     Dosage: QD,
     Dates: start: 19960101
  2. PHENOXYMETHYLPENICILLIN [Suspect]
  3. PHENYTOIN [Suspect]
     Indication: CONVULSION
     Dosage: 9 MG, QD
  4. LAMOTRIGINE (LAMOTRIGINE) UNKNOWN [Suspect]
     Indication: CONVULSION
     Dosage: 75 MG, BID, ORAL
     Route: 048
  5. FLUCONAZOLE [Concomitant]

REACTIONS (15)
  - ABNORMAL FAECES [None]
  - AUTISM [None]
  - CANDIDIASIS [None]
  - CONVULSION [None]
  - DIARRHOEA [None]
  - DRUG INEFFECTIVE [None]
  - EPISTAXIS [None]
  - IMPAIRED SELF-CARE [None]
  - LACTOSE INTOLERANCE [None]
  - PHARYNGEAL OEDEMA [None]
  - RASH GENERALISED [None]
  - UPPER LIMB FRACTURE [None]
  - UPPER RESPIRATORY TRACT INFECTION [None]
  - URINARY RETENTION [None]
  - VOMITING PROJECTILE [None]
